FAERS Safety Report 9996545 (Version 2)
Quarter: 2014Q2

REPORT INFORMATION
  Report Type: Spontaneous
  Country: IT (occurrence: IT)
  Receive Date: 20140311
  Receipt Date: 20140409
  Transmission Date: 20141212
  Serious: Yes (Other)
  Sender: FDA-Public Use
  Company Number: IT-PFIZER INC-2014066014

PATIENT
  Age: 60 Year
  Sex: Female

DRUGS (3)
  1. EFEXOR ER [Suspect]
     Indication: DEPRESSION
     Dosage: 75 MG, 1X/DAY
     Route: 048
     Dates: start: 20140101, end: 20140206
  2. OLMETEC [Concomitant]
     Dosage: 20 MG, UNK
     Route: 048
  3. PARIET [Concomitant]
     Dosage: UNK

REACTIONS (1)
  - Hypertensive crisis [Recovered/Resolved]
